FAERS Safety Report 10020139 (Version 3)
Quarter: 2014Q2

REPORT INFORMATION
  Report Type: Spontaneous
  Country: US (occurrence: US)
  Receive Date: 20140319
  Receipt Date: 20140519
  Transmission Date: 20141212
  Serious: Yes (Other)
  Sender: FDA-Public Use
  Company Number: US-AMGEN-USASP2014018421

PATIENT
  Sex: Male

DRUGS (1)
  1. PROCRIT [Suspect]
     Indication: PRODUCT USED FOR UNKNOWN INDICATION
     Dosage: 1ML/170MCG
     Route: 058

REACTIONS (3)
  - Anaemia [Not Recovered/Not Resolved]
  - Soft tissue disorder [Not Recovered/Not Resolved]
  - Connective tissue disorder [Not Recovered/Not Resolved]
